FAERS Safety Report 14005349 (Version 2)
Quarter: 2017Q4

REPORT INFORMATION
  Report Type: Spontaneous
  Country: TW (occurrence: TW)
  Receive Date: 20170922
  Receipt Date: 20171020
  Transmission Date: 20180321
  Serious: Yes (Hospitalization, Other)
  Sender: FDA-Public Use
  Company Number: TW-ASTELLAS-2017US038108

PATIENT
  Age: 29 Year
  Sex: Female

DRUGS (1)
  1. TACROLIMUS. [Suspect]
     Active Substance: TACROLIMUS
     Indication: PANCREAS TRANSPLANT
     Route: 065

REACTIONS (10)
  - Pre-eclampsia [Unknown]
  - Baseline foetal heart rate variability disorder [Unknown]
  - Premature delivery [Unknown]
  - Exposure during pregnancy [Unknown]
  - Chronic kidney disease [Unknown]
  - Caesarean section [Unknown]
  - Acute kidney injury [Unknown]
  - Nephropathy toxic [Unknown]
  - Haemodialysis [Unknown]
  - Off label use [Unknown]

NARRATIVE: CASE EVENT DATE: 201611
